FAERS Safety Report 4277857-0 (Version None)
Quarter: 2004Q1

REPORT INFORMATION
  Report Type: 
  Country: None (occurrence: None)
  Receive Date: 20040123
  Receipt Date: 20040115
  Transmission Date: 20041129
  Serious: Yes (Other)
  Sender: FDA-Public Use
  Company Number: PHEH2004US00953

PATIENT
  Age: 63 Year
  Sex: Male

DRUGS (8)
  1. DIOVAN [Suspect]
     Dosage: 80 MG, QD
     Route: 048
     Dates: start: 20031214
  2. DIOVAN [Suspect]
     Dosage: 40 MG, QD
     Route: 048
     Dates: start: 20040117
  3. BUMEX [Concomitant]
     Dosage: 1 MG, QD
     Dates: start: 20030801
  4. IMDUR [Concomitant]
     Dosage: 60 MG, QD
     Dates: start: 20030801
  5. ASPIRIN [Concomitant]
  6. MULTIVITAMIN [Concomitant]
  7. INSULIN [Concomitant]
     Dosage: 10 UNITS IN AM AND PM
  8. HUMALOG [Concomitant]
     Dosage: 10 UNITS, PM

REACTIONS (2)
  - BLOOD PRESSURE DECREASED [None]
  - WEIGHT DECREASED [None]
